FAERS Safety Report 4337860-9 (Version None)
Quarter: 2004Q1

REPORT INFORMATION
  Report Type: 
  Country: None (occurrence: None)
  Receive Date: 20040326
  Receipt Date: 20040122
  Transmission Date: 20041129
  Serious: Yes (Life-Threatening, Hospitalization)
  Sender: FDA-Public Use
  Company Number: 2004UW01170

PATIENT
  Age: 50 Year
  Sex: Male

DRUGS (12)
  1. ZESTRIL [Suspect]
     Dosage: 10 MG DAILY PO
     Route: 048
     Dates: start: 19960101, end: 20010608
  2. GATIFLOXACIN [Suspect]
     Dosage: 400 MG DAILY PO
     Route: 048
     Dates: start: 20010215, end: 20010606
  3. ATORVASTATIN CALCIUM [Suspect]
     Dosage: 1 DAILY PO
     Route: 048
     Dates: start: 20010201
  4. VASOTEC [Suspect]
     Dosage: 40 MG DAILY
     Dates: start: 19960101, end: 20010618
  5. NAPROSYN [Concomitant]
  6. PLAVIX [Concomitant]
  7. NORVASC [Concomitant]
  8. GLUCOTROL [Concomitant]
  9. IMDUR [Concomitant]
  10. ULTRAM [Concomitant]
  11. VITAMIN C [Concomitant]
  12. VITAMIN E [Concomitant]

REACTIONS (1)
  - ANGIONEUROTIC OEDEMA [None]
